FAERS Safety Report 4365837-6 (Version None)
Quarter: 2004Q2

REPORT INFORMATION
  Report Type: 
  Country: None (occurrence: None)
  Receive Date: 20040521
  Receipt Date: 20040412
  Transmission Date: 20050107
  Serious: Yes (Life-Threatening, Other)
  Sender: FDA-Public Use
  Company Number: 969

PATIENT
  Age: 17 Year
  Sex: Male

DRUGS (2)
  1. AMNESTEEM [Suspect]
  2. ACCUTANE [Suspect]

REACTIONS (1)
  - TESTIS CANCER [None]
